FAERS Safety Report 23648495 (Version 2)
Quarter: 2024Q2

REPORT INFORMATION
  Report Type: Spontaneous
  Country: US (occurrence: US)
  Receive Date: 20240319
  Receipt Date: 20240506
  Transmission Date: 20240715
  Serious: Yes (Other)
  Sender: FDA-Public Use
  Company Number: US-PFIZER INC-202400065798

PATIENT
  Age: 77 Year
  Sex: Female
  Weight: 79.365 kg

DRUGS (8)
  1. VYNDAMAX [Interacting]
     Active Substance: TAFAMIDIS
     Indication: Cardiac amyloidosis
     Dosage: 61 MG, 1X/DAY
     Dates: start: 20240308
  2. VYNDAMAX [Interacting]
     Active Substance: TAFAMIDIS
     Dosage: 61 MG, 1X/DAY
  3. METOPROLOL SUCCINATE [Interacting]
     Active Substance: METOPROLOL SUCCINATE
     Indication: Heart rate decreased
     Dosage: 100 MG, 2X/DAY
     Dates: start: 2023
  4. METOPROLOL SUCCINATE [Interacting]
     Active Substance: METOPROLOL SUCCINATE
     Dosage: INCREASED DOSE
     Dates: start: 202402
  5. ELIQUIS [Concomitant]
     Active Substance: APIXABAN
     Indication: Anticoagulant therapy
     Dosage: 5 MG, 2X/DAY
  6. JARDIANCE [Concomitant]
     Active Substance: EMPAGLIFLOZIN
     Indication: Cardiac disorder
     Dosage: 10 MG
     Dates: start: 202212
  7. SYNTHROID [Concomitant]
     Active Substance: LEVOTHYROXINE SODIUM
     Dosage: UNK
     Dates: start: 1994
  8. VITAMINS NOS [Concomitant]
     Active Substance: VITAMINS

REACTIONS (7)
  - Hallucination [Recovered/Resolved]
  - Drug interaction [Unknown]
  - Drug hypersensitivity [Not Recovered/Not Resolved]
  - Periorbital swelling [Unknown]
  - Ocular hyperaemia [Unknown]
  - Dysphagia [Unknown]
  - Rhinorrhoea [Unknown]

NARRATIVE: CASE EVENT DATE: 20240301
